FAERS Safety Report 8319271-4 (Version None)
Quarter: 2012Q2

REPORT INFORMATION
  Report Type: 
  Country: None (occurrence: None)
  Receive Date: 20120426
  Receipt Date: 20120426
  Transmission Date: 20120825
  Serious: Yes (Hospitalization)
  Sender: FDA-Public Use
  Company Number: None

PATIENT
  Sex: Female
  Weight: 63.5 kg

DRUGS (2)
  1. CISPLATIN [Suspect]
     Dosage: 513 MG
     Dates: end: 20100831
  2. GEMCITABINE HYDROCHLORIDE [Suspect]
     Dosage: 2050 MG
     Dates: end: 20100831

REACTIONS (3)
  - DEEP VEIN THROMBOSIS [None]
  - CELLULITIS [None]
  - NEUROPATHY PERIPHERAL [None]
